FAERS Safety Report 7831431-5 (Version None)
Quarter: 2011Q4

REPORT INFORMATION
  Report Type: 
  Country: None (occurrence: None)
  Receive Date: 20111021
  Receipt Date: 20111019
  Transmission Date: 20120403
  Serious: Yes (Other)
  Sender: FDA-Public Use
  Company Number: US-CEPHALON-2011004178

PATIENT
  Sex: Male
  Weight: 98 kg

DRUGS (5)
  1. VIAGRA [Concomitant]
  2. NUVIGIL [Suspect]
     Route: 048
  3. WELLBUTRIN [Concomitant]
  4. NUVIGIL [Suspect]
     Indication: CIRCADIAN RHYTHM SLEEP DISORDER
     Route: 048
     Dates: start: 20110221
  5. SEROQUEL [Concomitant]

REACTIONS (9)
  - CONFUSIONAL STATE [None]
  - HALLUCINATION, AUDITORY [None]
  - INTENTIONAL OVERDOSE [None]
  - MOOD ALTERED [None]
  - CONTUSION [None]
  - RHABDOMYOLYSIS [None]
  - BLOOD KETONE BODY [None]
  - HALLUCINATION, VISUAL [None]
  - INSOMNIA [None]
